FAERS Safety Report 8476353-4 (Version None)
Quarter: 2012Q2

REPORT INFORMATION
  Report Type: 
  Country: None (occurrence: None)
  Receive Date: 20120628
  Receipt Date: 20120627
  Transmission Date: 20120825
  Serious: No
  Sender: FDA-Public Use
  Company Number: US-BAYER-2012-063898

PATIENT
  Age: 57 Year
  Sex: Female
  Weight: 63 kg

DRUGS (4)
  1. BETASERON [Suspect]
     Indication: MULTIPLE SCLEROSIS
     Dosage: 0.25 ML, QOD
     Route: 058
     Dates: start: 20120611
  2. BETASERON [Suspect]
     Dosage: 0.75 ML, QOD
     Route: 058
  3. BETASERON [Suspect]
     Dosage: 1 ML, QOD
     Route: 058
  4. BETASERON [Suspect]
     Dosage: 0.5 ML, QOD
     Route: 058

REACTIONS (3)
  - INFLUENZA LIKE ILLNESS [None]
  - CHILLS [None]
  - HEADACHE [None]
